FAERS Safety Report 4410692-9 (Version None)
Quarter: 2004Q3

REPORT INFORMATION
  Report Type: 
  Country: None (occurrence: None)
  Receive Date: 20040726
  Receipt Date: 20040712
  Transmission Date: 20050211
  Serious: Yes (Life-Threatening, Hospitalization, Other)
  Sender: FDA-Public Use
  Company Number: 2004046541

PATIENT
  Age: 55 Year
  Sex: Male

DRUGS (5)
  1. VORICONAZOLE (VORICONAZOLE) [Suspect]
     Indication: CANDIDIASIS
     Dosage: 400 MG (200 MG, 2 IN 1 D), INTRAVENOUS
     Route: 042
     Dates: start: 20040601, end: 20040601
  2. ITRACONAZOLE [Concomitant]
  3. CYCLOSPORINE [Concomitant]
  4. PIP / TAZO (PIPERACILLIN SODIUM, TAZOBACTAM SODIUM) [Concomitant]
  5. TEICOPLANIN (TEICOPLANIN) [Concomitant]

REACTIONS (4)
  - CANDIDIASIS [None]
  - HEPATITIS [None]
  - MULTI-ORGAN FAILURE [None]
  - SEPSIS [None]
